FAERS Safety Report 9675526 (Version 3)
Quarter: 2013Q4

REPORT INFORMATION
  Report Type: Spontaneous
  Country: BR (occurrence: BR)
  Receive Date: 20131107
  Receipt Date: 20131202
  Transmission Date: 20140711
  Serious: Yes (Other)
  Sender: FDA-Public Use
  Company Number: BR-PFIZER INC-2013313424

PATIENT
  Sex: Female

DRUGS (2)
  1. NORDETTE [Suspect]
     Dosage: UNK
  2. AMOXICILLIN [Suspect]
     Indication: GASTRITIS
     Dosage: UNK
     Route: 048

REACTIONS (7)
  - Helicobacter gastritis [Not Recovered/Not Resolved]
  - Pollakiuria [Unknown]
  - Feeling abnormal [Not Recovered/Not Resolved]
  - Metrorrhagia [Recovered/Resolved]
  - Breast swelling [Not Recovered/Not Resolved]
  - Breast pain [Not Recovered/Not Resolved]
  - Nausea [Unknown]
